FAERS Safety Report 6946027-7 (Version None)
Quarter: 2010Q3

REPORT INFORMATION
  Report Type: 
  Country: None (occurrence: None)
  Receive Date: 20100827
  Receipt Date: 20100126
  Transmission Date: 20110219
  Serious: No
  Sender: FDA-Public Use
  Company Number: A0841503A

PATIENT
  Age: 66 Year
  Sex: Female

DRUGS (2)
  1. ZOVIRAX [Suspect]
     Route: 061
     Dates: start: 20091223, end: 20100120
  2. GLUCERNA [Concomitant]

REACTIONS (3)
  - DIARRHOEA [None]
  - DRUG INEFFECTIVE [None]
  - RHINORRHOEA [None]
